FAERS Safety Report 8793827 (Version 2)
Quarter: 2012Q4

REPORT INFORMATION
  Report Type: Report from Study
  Country: JP (occurrence: JP)
  Receive Date: 20120917
  Receipt Date: 20121010
  Transmission Date: 20130627
  Serious: Yes (Death)
  Sender: FDA-Public Use
  Company Number: PHHY2012JP072589

PATIENT
  Age: 84 Year
  Sex: Female
  Weight: 48 kg

DRUGS (5)
  1. EXELON [Suspect]
     Indication: DEMENTIA ALZHEIMER^S TYPE
     Dosage: 4.5 mg, daily
     Route: 062
     Dates: start: 20120120
  2. EXELON [Suspect]
     Dosage: 9 mg, daily
     Route: 062
     Dates: start: 20120217
  3. EXELON [Suspect]
     Dosage: 13.5 mg, daily
     Route: 062
     Dates: start: 20120316
  4. EXELON [Suspect]
     Dosage: 18 mg daily
     Route: 062
     Dates: start: 20120413
  5. LANSOPRAZOLE [Concomitant]
     Indication: REFLUX GASTRITIS
     Dosage: 15 mg, UNK
     Route: 048
     Dates: start: 20120416

REACTIONS (2)
  - Disseminated intravascular coagulation [Fatal]
  - Sepsis [Fatal]
